FAERS Safety Report 6016589-5 (Version None)
Quarter: 2008Q4

REPORT INFORMATION
  Report Type: 
  Country: None (occurrence: None)
  Receive Date: 20081222
  Receipt Date: 20081211
  Transmission Date: 20090506
  Serious: Yes (Other)
  Sender: FDA-Public Use
  Company Number: PHHY2008JP31938

PATIENT

DRUGS (2)
  1. NEORAL [Suspect]
     Indication: RENAL TRANSPLANT
     Dosage: UNK
     Route: 048
  2. IMURAN [Concomitant]
     Indication: RENAL TRANSPLANT
     Route: 048

REACTIONS (3)
  - CATARACT [None]
  - EYE OPERATION [None]
  - RETINAL DETACHMENT [None]
